FAERS Safety Report 16096578 (Version 2)
Quarter: 2019Q1

REPORT INFORMATION
  Report Type: Spontaneous
  Country: US (occurrence: US)
  Receive Date: 20190320
  Receipt Date: 20190322
  Transmission Date: 20190418
  Serious: No
  Sender: FDA-Public Use
  Company Number: US-BAYER-2019-052274

PATIENT

DRUGS (1)
  1. BAYER ASPIRIN [Suspect]
     Active Substance: ASPIRIN

REACTIONS (1)
  - Drug hypersensitivity [None]
